FAERS Safety Report 9448381 (Version 4)
Quarter: 2013Q4

REPORT INFORMATION
  Report Type: Report from Study
  Country: KR (occurrence: KR)
  Receive Date: 20130808
  Receipt Date: 20131230
  Transmission Date: 20140711
  Serious: Yes (Hospitalization)
  Sender: FDA-Public Use
  Company Number: KR-BAYER-2013-090098

PATIENT
  Age: 63 Year
  Sex: Male
  Weight: 90 kg

DRUGS (17)
  1. REGORAFENIB [Suspect]
     Indication: COLORECTAL CANCER METASTATIC
     Dosage: 160 MG, QD
     Route: 048
     Dates: start: 20130111, end: 20130131
  2. REGORAFENIB [Suspect]
     Indication: COLORECTAL CANCER METASTATIC
     Dosage: 160 MG, QD
     Route: 048
     Dates: start: 20130208, end: 20130228
  3. REGORAFENIB [Suspect]
     Indication: COLORECTAL CANCER METASTATIC
     Dosage: 160 MG, QD
     Route: 048
     Dates: start: 20130308, end: 20130328
  4. REGORAFENIB [Suspect]
     Indication: COLORECTAL CANCER METASTATIC
     Dosage: 160 MG, QD
     Route: 048
     Dates: start: 20130405, end: 20130425
  5. REGORAFENIB [Suspect]
     Indication: COLORECTAL CANCER METASTATIC
     Dosage: 160 MG, QD
     Route: 048
     Dates: start: 20130503, end: 20130523
  6. REGORAFENIB [Suspect]
     Indication: COLORECTAL CANCER METASTATIC
     Dosage: 160 MG, QD
     Route: 048
     Dates: start: 20130531, end: 20130620
  7. REGORAFENIB [Suspect]
     Indication: COLORECTAL CANCER METASTATIC
     Dosage: 160 MG, QD
     Route: 048
     Dates: start: 20130628, end: 20130718
  8. REGORAFENIB [Suspect]
     Indication: COLORECTAL CANCER METASTATIC
     Dosage: UNK
     Dates: start: 20130731
  9. PIOGLITAZONE HYDROCHLORIDE [Concomitant]
     Indication: DIABETES MELLITUS
     Dosage: 15 MG, QD
     Route: 048
     Dates: start: 2012, end: 201307
  10. DIABEX [Concomitant]
     Indication: DIABETES MELLITUS
     Dosage: 1 DF, BID
     Route: 048
     Dates: start: 2012
  11. DIABEX [Concomitant]
     Indication: DIABETES MELLITUS
     Dosage: 500 MG, BID
     Route: 048
     Dates: start: 20130728
  12. ALDACTONE [SPIRONOLACTONE] [Concomitant]
     Indication: ASCITES
     Dosage: 25 MG, BID, EVERY OTHER DAY
     Route: 048
     Dates: start: 20130627
  13. LASIX [Concomitant]
     Indication: ASCITES
     Dosage: 20 MG, BID, EVERY OTHER DAY
     Route: 048
     Dates: start: 20130727
  14. AMARYL [Concomitant]
     Indication: DIABETES MELLITUS
     Dosage: 2/500 MG BID
     Route: 048
     Dates: start: 201307, end: 20130721
  15. TRAJENTA [Concomitant]
     Indication: DIABETES MELLITUS
     Dosage: 5 MG, QD
     Route: 048
     Dates: start: 20130728
  16. GLIMEPIRIDE [Concomitant]
     Indication: DIABETES MELLITUS
     Dosage: 2 MG, BID
     Route: 048
     Dates: start: 2012, end: 201307
  17. GLIMEPIRIDE [Concomitant]
     Indication: DIABETES MELLITUS
     Dosage: 2 MG, QD
     Route: 048
     Dates: start: 2012, end: 201307

REACTIONS (2)
  - Hypoglycaemia [Recovered/Resolved]
  - Pneumonia [Recovered/Resolved]
